FAERS Safety Report 18399572 (Version 1)
Quarter: 2020Q4

REPORT INFORMATION
  Report Type: Spontaneous
  Country: US (occurrence: US)
  Receive Date: 20201019
  Receipt Date: 20201019
  Transmission Date: 20210114
  Serious: No
  Sender: FDA-Public Use
  Company Number: US-ALLERGAN-2007817US

PATIENT
  Age: 57 Year
  Sex: Female

DRUGS (3)
  1. VRAYLAR [Suspect]
     Active Substance: CARIPRAZINE
     Indication: DEPRESSION
     Dosage: 4.5 MG, QD
     Route: 048
     Dates: start: 201911
  2. KLONOPIN [Concomitant]
     Active Substance: CLONAZEPAM
     Dosage: 1 MG, QD
  3. OSMOLEX ER [Suspect]
     Active Substance: AMANTADINE
     Indication: TREMOR
     Dosage: 129 MG, QD
     Route: 048
     Dates: start: 201911

REACTIONS (6)
  - Muscular weakness [Unknown]
  - Contusion [Unknown]
  - Fall [Unknown]
  - Balance disorder [Unknown]
  - Tardive dyskinesia [Recovered/Resolved]
  - Dyskinesia [Recovered/Resolved]

NARRATIVE: CASE EVENT DATE: 201912
